FAERS Safety Report 17639241 (Version 1)
Quarter: 2020Q2

REPORT INFORMATION
  Report Type: Spontaneous
  Country: US (occurrence: US)
  Receive Date: 20200407
  Receipt Date: 20200407
  Transmission Date: 20200713
  Serious: Yes (Hospitalization)
  Sender: FDA-Public Use
  Company Number: US-ACTELION-A-US2020-203833

PATIENT
  Sex: Female
  Weight: 62.13 kg

DRUGS (3)
  1. WARFARIN [Concomitant]
     Active Substance: WARFARIN
  2. OPSUMIT [Suspect]
     Active Substance: MACITENTAN
     Indication: PULMONARY ARTERIAL HYPERTENSION
     Dosage: 10 MG, QD
     Route: 048
  3. TADALAFIL. [Concomitant]
     Active Substance: TADALAFIL

REACTIONS (1)
  - Intestinal obstruction [Recovered/Resolved]
